FAERS Safety Report 6101085-7 (Version None)
Quarter: 2009Q1

REPORT INFORMATION
  Report Type: 
  Country: None (occurrence: None)
  Receive Date: 20090227
  Receipt Date: 20090223
  Transmission Date: 20090719
  Serious: Yes (Hospitalization, Disabling)
  Sender: FDA-Public Use
  Company Number: 041399

PATIENT
  Age: 56 Year
  Sex: Female

DRUGS (3)
  1. METHOTREXATE [Suspect]
     Indication: RHEUMATOID ARTHRITIS
  2. HYDROXYCHLOROQUINE SULFATE [Concomitant]
  3. PREDNISONE TAB [Concomitant]

REACTIONS (5)
  - CSF PROTEIN INCREASED [None]
  - CSF TEST ABNORMAL [None]
  - LYMPHOPROLIFERATIVE DISORDER [None]
  - RADICULOPATHY [None]
  - VIRAL DNA TEST POSITIVE [None]
